FAERS Safety Report 8542949-4 (Version None)
Quarter: 2012Q3

REPORT INFORMATION
  Report Type: 
  Country: None (occurrence: None)
  Receive Date: 20120727
  Receipt Date: 20120720
  Transmission Date: 20120928
  Serious: Yes (Disabling, Other)
  Sender: FDA-Public Use
  Company Number: US-PFIZER INC-US-WYE-H03173908

PATIENT
  Sex: Female
  Weight: 73 kg

DRUGS (9)
  1. PREMPRO [Suspect]
     Dosage: 0.625/5MG, ONCE DAILY
     Route: 048
     Dates: start: 19981101, end: 20020901
  2. PREMPRO [Suspect]
     Dosage: 0.625/2.5MG, ONCE DAILY
     Route: 048
     Dates: start: 20020901, end: 20040301
  3. SULINDAC [Concomitant]
     Indication: OSTEOARTHRITIS
  4. LIBRAX [Concomitant]
     Dosage: UNK
  5. NEXIUM [Concomitant]
     Dosage: UNK
     Dates: start: 20010101
  6. PREMPRO [Suspect]
     Indication: HORMONE REPLACEMENT THERAPY
     Dosage: 0.625/2.5MG, ONCE DAILY
     Route: 048
     Dates: start: 19971001, end: 19981101
  7. SULINDAC [Concomitant]
     Indication: FIBROMYALGIA
     Dosage: 200 MG, 2X/DAY
     Route: 048
  8. PREMARIN [Suspect]
     Indication: HORMONE REPLACEMENT THERAPY
     Dosage: HALF APPLICATORFUL INTO VAGINA AT BEDTIME EVERY NIGHT FOR TWO WEEKS AND THEN USE TWO TIMES A WEEK
     Route: 067
     Dates: start: 20010424, end: 20010101
  9. ZIAC [Concomitant]
     Indication: BLOOD PRESSURE
     Dosage: 5 MG, UNK
     Dates: start: 19990101

REACTIONS (1)
  - BREAST CANCER FEMALE [None]
